FAERS Safety Report 18156425 (Version 4)
Quarter: 2024Q1

REPORT INFORMATION
  Report Type: Spontaneous
  Country: US (occurrence: US)
  Receive Date: 20200817
  Receipt Date: 20240129
  Transmission Date: 20240409
  Serious: No
  Sender: FDA-Public Use
  Company Number: US-PFIZER INC-2020313556

PATIENT
  Age: 52 Year
  Sex: Female

DRUGS (30)
  1. XELJANZ XR [Suspect]
     Active Substance: TOFACITINIB CITRATE
     Indication: Psoriasis
     Dosage: 11 MG, 1X/DAY
     Route: 048
     Dates: start: 202004
  2. XELJANZ XR [Suspect]
     Active Substance: TOFACITINIB CITRATE
     Indication: Rheumatoid arthritis
     Dosage: 11 MG, DAILY
     Route: 048
     Dates: start: 202004
  3. XELJANZ XR [Suspect]
     Active Substance: TOFACITINIB CITRATE
     Dosage: 11 MG
     Dates: start: 20210618
  4. FAMOTIDINE [Concomitant]
     Active Substance: FAMOTIDINE
     Dosage: 40 MG
  5. MELATONIN [Concomitant]
     Active Substance: MELATONIN
     Dosage: 10 MG
  6. ASPIRIN [Concomitant]
     Active Substance: ASPIRIN
     Dosage: 81 MG
  7. LOSARTAN POTASSIUM [Concomitant]
     Active Substance: LOSARTAN POTASSIUM
     Dosage: 100 MG
  8. SIMVASTATIN [Concomitant]
     Active Substance: SIMVASTATIN
     Dosage: 20 MG
  9. METFORMIN HYDROCHLORIDE [Concomitant]
     Active Substance: METFORMIN HYDROCHLORIDE
     Dosage: 500 MG
  10. GABAPENTIN [Concomitant]
     Active Substance: GABAPENTIN
     Dosage: 400 MG
  11. HYDROCHLOROTHIAZIDE [Concomitant]
     Active Substance: HYDROCHLOROTHIAZIDE
     Dosage: 12.5 MG
  12. BACLOFEN [Concomitant]
     Active Substance: BACLOFEN
     Dosage: 10 MG
  13. CLOPIDOGREL [Concomitant]
     Active Substance: CLOPIDOGREL BISULFATE
     Dosage: 75 MG
  14. TRAMADOL HCL [Concomitant]
     Active Substance: TRAMADOL HYDROCHLORIDE
     Dosage: 50 MG
  15. OXYCODONE HYDROCHLORIDE [Concomitant]
     Active Substance: OXYCODONE HYDROCHLORIDE
     Dosage: 10 MG
  16. LEFLUNOMIDE [Concomitant]
     Active Substance: LEFLUNOMIDE
     Dosage: 20 MG
  17. AMITRIPTYLINE HYDROCHLORIDE [Concomitant]
     Active Substance: AMITRIPTYLINE HYDROCHLORIDE
     Dosage: 25 MG
  18. RANEXA [Concomitant]
     Active Substance: RANOLAZINE
     Dosage: 500 MG
  19. FENOFIBRATE [Concomitant]
     Active Substance: FENOFIBRATE
     Dosage: 145 MG
  20. BIOTIN [Concomitant]
     Active Substance: BIOTIN
     Dosage: 10 MG
  21. VITAMIN D3 [Concomitant]
     Active Substance: CHOLECALCIFEROL
     Dosage: 10 UG
  22. FISH OIL [Concomitant]
     Active Substance: FISH OIL
     Dosage: UNK (120-180-60 CAPSULE DR)
  23. METHOTREXATE [Concomitant]
     Active Substance: METHOTREXATE
     Dosage: 2.5 MG
  24. ALBUTEROL SULFATE [Concomitant]
     Active Substance: ALBUTEROL SULFATE
  25. VITAMIN B12 [Concomitant]
     Active Substance: CYANOCOBALAMIN
  26. CALCIUM [Concomitant]
     Active Substance: CALCIUM
  27. DEXILANT [Concomitant]
     Active Substance: DEXLANSOPRAZOLE
  28. DICLOFENAC [Concomitant]
     Active Substance: DICLOFENAC
  29. HYDROXYZINE [Concomitant]
     Active Substance: HYDROXYZINE HYDROCHLORIDE
  30. LORAZEPAM [Concomitant]
     Active Substance: LORAZEPAM

REACTIONS (6)
  - Muscle twitching [Unknown]
  - Paraesthesia [Unknown]
  - Constipation [Recovered/Resolved]
  - Therapeutic response unexpected [Unknown]
  - Hair growth abnormal [Unknown]
  - Infection [Unknown]

NARRATIVE: CASE EVENT DATE: 20200101
